FAERS Safety Report 15503478 (Version 1)
Quarter: 2018Q4

REPORT INFORMATION
  Report Type: Spontaneous
  Country: US (occurrence: US)
  Receive Date: 20181009
  Receipt Date: 20181009
  Transmission Date: 20190205
  Serious: Yes (Other)
  Sender: FDA-Public Use
  Company Number: None

PATIENT
  Age: 9 Year
  Sex: Female

DRUGS (1)
  1. RID LICE TREATMENT COMPLETE KIT [Suspect]
     Active Substance: PIPERONYL BUTOXIDE\PYRETHRUM EXTRACT
     Indication: LICE INFESTATION
     Dosage: ?          QUANTITY:1 SHAMPOO;OTHER ROUTE:APPLY TO HEAD SCALP AS DIRECTED?
     Dates: start: 20180729, end: 20180729

REACTIONS (6)
  - Crying [None]
  - Application site pain [None]
  - Skin burning sensation [None]
  - Chemical burn [None]
  - Expired product administered [None]
  - Screaming [None]

NARRATIVE: CASE EVENT DATE: 20180729
